FAERS Safety Report 5355293-3 (Version None)
Quarter: 2007Q2

REPORT INFORMATION
  Report Type: 
  Country: None (occurrence: None)
  Receive Date: 20070606
  Receipt Date: 20070601
  Transmission Date: 20071010
  Serious: Yes (Other)
  Sender: FDA-Public Use
  Company Number: 3003374197-2006-00004

PATIENT
  Age: 37 Year
  Sex: Female

DRUGS (1)
  1. 07-0192 OD [Suspect]
     Dosage: TRANSPLANTATION

REACTIONS (1)
  - CONTRAINDICATION TO MEDICAL TREATMENT [None]
